FAERS Safety Report 7364949-2 (Version None)
Quarter: 2011Q1

REPORT INFORMATION
  Report Type: 
  Country: None (occurrence: None)
  Receive Date: 20110321
  Receipt Date: 20110311
  Transmission Date: 20110831
  Serious: Yes (Life-Threatening, Hospitalization)
  Sender: FDA-Public Use
  Company Number: GB-TEVA-271502ISR

PATIENT
  Sex: Female

DRUGS (9)
  1. ASPIRIN [Concomitant]
     Route: 048
  2. OMEPRAZOLE [Concomitant]
  3. CODEINE PHOSPHATE AND ACETAMINOPHEN [Concomitant]
     Dosage: 16MG/100MG
     Route: 048
  4. TRAMADOL HCL [Concomitant]
     Route: 048
  5. TROSPIUM CHLORIDE [Concomitant]
     Route: 048
  6. ARLEVERT (CINNARIZINE/DIMENHYDRINATE) [Concomitant]
     Dosage: 20MG/40MG
     Route: 048
  7. AMITRIPTYLINE [Concomitant]
     Route: 048
  8. GLATIRAMER ACETATE [Suspect]
     Route: 058
     Dates: start: 20061001
  9. MOVIPREP [Concomitant]
     Route: 048

REACTIONS (3)
  - HAEMOGLOBIN DECREASED [None]
  - MYELOPROLIFERATIVE DISORDER [None]
  - ARTERIAL THROMBOSIS [None]
